FAERS Safety Report 6045937-5 (Version None)
Quarter: 2009Q1

REPORT INFORMATION
  Report Type: 
  Country: None (occurrence: None)
  Receive Date: 20090116
  Receipt Date: 20090112
  Transmission Date: 20090719
  Serious: Yes (Life-Threatening, Hospitalization)
  Sender: FDA-Public Use
  Company Number: 6048188

PATIENT
  Age: 41 Year
  Sex: Male

DRUGS (5)
  1. BISOPROLOL FUMARATE [Suspect]
     Indication: HYPERTENSION
     Dosage: 5 MG (5 MG, 1 IN 1 D), ORAL
     Route: 048
     Dates: start: 20080320
  2. ACETYLSALICYLIC ACID SRT [Concomitant]
  3. ATACAND [Concomitant]
  4. PANTOPRAZOLE SODIUM [Concomitant]
  5. UNIMAX (FELODIPINE, RAMIPRIL) [Concomitant]

REACTIONS (1)
  - TACHYCARDIA [None]
